FAERS Safety Report 4388635-6 (Version None)
Quarter: 2004Q2

REPORT INFORMATION
  Report Type: 
  Country: None (occurrence: None)
  Receive Date: 20040624
  Receipt Date: 20040608
  Transmission Date: 20050107
  Serious: Yes (Hospitalization)
  Sender: FDA-Public Use
  Company Number: 199674

PATIENT
  Age: 62 Year
  Sex: Female

DRUGS (1)
  1. AVONEX [Suspect]
     Indication: MULTIPLE SCLEROSIS
     Dosage: 30 MCG QW IM
     Route: 030

REACTIONS (5)
  - ANAEMIA [None]
  - BENIGN COLONIC NEOPLASM [None]
  - BLOOD URINE [None]
  - GASTRIC HAEMORRHAGE [None]
  - POST PROCEDURAL COMPLICATION [None]
